FAERS Safety Report 8332090-8 (Version None)
Quarter: 2012Q2

REPORT INFORMATION
  Report Type: 
  Country: None (occurrence: None)
  Receive Date: 20120502
  Receipt Date: 20111219
  Transmission Date: 20120825
  Serious: Yes (Death, Hospitalization)
  Sender: FDA-Public Use
  Company Number: PT-BAXTER-2011BH038538

PATIENT

DRUGS (6)
  1. PHYSIONEAL 40 GLUCOSE 1,36% P/V / 13,6 MG/ML [Suspect]
     Route: 033
     Dates: start: 20111102, end: 20111124
  2. EXTRANEAL [Suspect]
     Route: 033
     Dates: start: 20111001, end: 20111102
  3. EXTRANEAL [Suspect]
     Route: 033
     Dates: start: 20090925
  4. EXTRANEAL [Suspect]
     Route: 033
     Dates: start: 20111102, end: 20111124
  5. PHYSIONEAL 40 GLUCOSE 1,36% P/V / 13,6 MG/ML [Suspect]
     Route: 033
     Dates: start: 20111001, end: 20111102
  6. PHYSIONEAL 40 GLUCOSE 1,36% P/V / 13,6 MG/ML [Suspect]
     Route: 033
     Dates: start: 20090925

REACTIONS (4)
  - GANGRENE [None]
  - MALNUTRITION [None]
  - SEPTIC SHOCK [None]
  - PERITONITIS BACTERIAL [None]
